FAERS Safety Report 18916773 (Version 4)
Quarter: 2022Q1

REPORT INFORMATION
  Report Type: Spontaneous
  Country: IN (occurrence: IN)
  Receive Date: 20210219
  Receipt Date: 20220225
  Transmission Date: 20220423
  Serious: Yes (Other)
  Sender: FDA-Public Use
  Company Number: IN-PFIZER INC-2021133410

PATIENT
  Age: 63 Year
  Sex: Male

DRUGS (12)
  1. CRIZOTINIB [Suspect]
     Active Substance: CRIZOTINIB
     Indication: Non-small cell lung cancer
     Dosage: 250 MG, 2X/DAY
     Route: 048
     Dates: start: 20200714
  2. LEVETIRACETAM [Concomitant]
     Active Substance: LEVETIRACETAM
     Dosage: 500 MG, 2X/DAY (1-0-1)
  3. ONDANSETRON HYDROCHLORIDE [Concomitant]
     Active Substance: ONDANSETRON HYDROCHLORIDE
     Indication: Vomiting
     Dosage: 8 MG, 1-1-1 BEFORE FOOD FOR 3 DAYS (AS NEEDED)
  4. ONDANSETRON HYDROCHLORIDE [Concomitant]
     Active Substance: ONDANSETRON HYDROCHLORIDE
     Indication: Nausea
  5. PAN [Concomitant]
     Indication: Gastritis
     Dosage: 40 MG, 1-0-0 BEFORE FOOD X 10 DAYS, AS NEEDED
  6. DOLO 4 [Concomitant]
     Indication: Pain
     Dosage: 650 MG, AS NEEDED (1 TAB IF NEEDED)
  7. DOLO 4 [Concomitant]
     Indication: Pyrexia
  8. REDOTIL [Concomitant]
     Indication: Diarrhoea
     Dosage: 100 MG, AS NEEDED (1 CAP 1-0-0 AS NEEDED)
  9. DUPHALAC [Concomitant]
     Active Substance: LACTULOSE
     Indication: Constipation
     Dosage: 10 ML, THRICE DAILY(IF NEEDED)
  10. SUPRACAL [CALCIUM] [Concomitant]
     Dosage: 0-1-0 AFTER FOOD
  11. DOMSTAL [DOMPERIDONE MALEATE] [Concomitant]
     Dosage: UNK, 2X/DAY (1-0-1 BEFORE FOOD)
     Route: 048
  12. ONCOLIFE PLUS [Concomitant]
     Dosage: UNK

REACTIONS (4)
  - Aortic valve sclerosis [Unknown]
  - Mitral valve incompetence [Unknown]
  - Tricuspid valve incompetence [Unknown]
  - Neoplasm progression [Unknown]

NARRATIVE: CASE EVENT DATE: 20201201
